FAERS Safety Report 19037046 (Version 1)
Quarter: 2021Q1

REPORT INFORMATION
  Report Type: Other
  Country: DE (occurrence: DE)
  Receive Date: 20210322
  Receipt Date: 20210322
  Transmission Date: 20210420
  Serious: Yes (Hospitalization)
  Sender: FDA-Public Use
  Company Number: DE-LUPIN PHARMACEUTICALS INC.-2021-03447

PATIENT
  Age: 13 Year
  Sex: Female
  Weight: 62 kg

DRUGS (1)
  1. LAMOTRIGINE TABLETS 25 MG [Suspect]
     Active Substance: LAMOTRIGINE
     Indication: EPILEPSY
     Dosage: 2 DOSAGE FORM, QD, 2 SEPARATED DOSES
     Route: 048
     Dates: start: 20200124

REACTIONS (1)
  - Rash [Recovering/Resolving]

NARRATIVE: CASE EVENT DATE: 20200203
